FAERS Safety Report 5662544-4 (Version None)
Quarter: 2008Q1

REPORT INFORMATION
  Report Type: 
  Country: None (occurrence: None)
  Receive Date: 20080220
  Receipt Date: 20070618
  Transmission Date: 20080703
  Serious: Yes (Hospitalization)
  Sender: FDA-Public Use
  Company Number: MK-6034780

PATIENT
  Age: 84 Year
  Sex: Male

DRUGS (4)
  1. LOVASTATIN [Suspect]
     Indication: HYPERCHOLESTEROLAEMIA
  2. KETOCONAZOLE [Suspect]
     Indication: PROSTATE CANCER
     Dosage: 400 MG; 3 TIMES A DAY; ORAL
     Route: 048
  3. LEUPRORELIN (PREV.) [Concomitant]
  4. BICALUTAMIDE (PREV.) [Concomitant]

REACTIONS (3)
  - DRUG INTERACTION [None]
  - HEPATITIS [None]
  - RHABDOMYOLYSIS [None]
